FAERS Safety Report 21194352 (Version 1)
Quarter: 2022Q3

REPORT INFORMATION
  Report Type: Spontaneous
  Country: US (occurrence: None)
  Receive Date: 20220809
  Receipt Date: 20220809
  Transmission Date: 20221027
  Serious: Yes (Other)
  Sender: FDA-Public Use
  Company Number: None

PATIENT
  Age: 49 Year
  Sex: Female
  Weight: 110.25 kg

DRUGS (10)
  1. JARDIANCE [Suspect]
     Active Substance: EMPAGLIFLOZIN
     Indication: Diabetes mellitus
     Dosage: OTHER QUANTITY : 1 TABLET(S);?
     Route: 048
     Dates: start: 20220709, end: 20220715
  2. ALBUTEROL SULFATE [Concomitant]
     Active Substance: ALBUTEROL SULFATE
  3. IBUPROFEN [Concomitant]
     Active Substance: IBUPROFEN
  4. MONTELUKAST SODIUM [Concomitant]
     Active Substance: MONTELUKAST SODIUM
  5. Loratadine 10 mg [Concomitant]
  6. Famitidine 40mg [Concomitant]
  7. Olmesartan 25 mg [Concomitant]
  8. Glimepiride 4 mg two tablets every morning [Concomitant]
  9. VITAMIN E [Concomitant]
     Active Substance: .ALPHA.-TOCOPHEROL
  10. OMEGA 3 [Concomitant]
     Active Substance: CAPSAICIN

REACTIONS (6)
  - Renal disorder [None]
  - Sciatic nerve injury [None]
  - Cystitis [None]
  - Fungal infection [None]
  - Burning sensation [None]
  - Swelling [None]

NARRATIVE: CASE EVENT DATE: 20220713
